FAERS Safety Report 8530885-9 (Version None)
Quarter: 2012Q3

REPORT INFORMATION
  Report Type: 
  Country: None (occurrence: None)
  Receive Date: 20120723
  Receipt Date: 20120716
  Transmission Date: 20120928
  Serious: Yes (Hospitalization, Other)
  Sender: FDA-Public Use
  Company Number: US-AMGEN-USASP2012039510

PATIENT
  Age: 64 Year
  Sex: Female
  Weight: 91.92 kg

DRUGS (10)
  1. VITAMIN D [Concomitant]
     Dosage: UNK
     Route: 048
  2. MULTIVITAMIN                       /00097801/ [Concomitant]
     Dosage: UNK
     Route: 048
  3. LUTEIN                             /01638501/ [Concomitant]
     Dosage: UNK
     Route: 048
  4. HUMIRA [Concomitant]
     Dosage: 40 MG, Q2WK
     Dates: start: 20091001, end: 20100901
  5. HYDROCHLOROTHIAZIDE [Concomitant]
     Dosage: 12.5 MG, QD
     Route: 048
  6. TOPROL-XL [Concomitant]
     Dosage: 150 MG, QD
     Route: 048
  7. FISH OIL [Concomitant]
     Dosage: UNK
     Route: 048
  8. ENBREL [Suspect]
     Indication: PSORIASIS
     Dosage: 50 MG, QWK
     Route: 058
     Dates: start: 20070901, end: 20120601
  9. ASPIRIN [Concomitant]
     Route: 048
  10. VITAMIN B COMPLEX CAP [Concomitant]
     Dosage: UNK
     Route: 048

REACTIONS (2)
  - ENDOMETRIAL CANCER [None]
  - LYMPHOMA [None]
